FAERS Safety Report 8878943 (Version 2)
Quarter: 2012Q4

REPORT INFORMATION
  Report Type: 
  Country: US (occurrence: US)
  Receive Date: 20121030
  Receipt Date: 20121120
  Transmission Date: 20130627
  Serious: No
  Sender: FDA-Public Use
  Company Number: US-VERTEX PHARMACEUTICAL INC.-2012-023601

PATIENT
  Age: 0 None
  Sex: Female
  Weight: 96 kg

DRUGS (4)
  1. VX-950 (TELAPREVIR) [Suspect]
     Indication: HEPATITIS C
     Dosage: 750 mg, tid
     Route: 048
     Dates: start: 20121012
  2. PEGASYS [Concomitant]
     Indication: HEPATITIS C
     Dosage: 180 ?g, UNK
     Route: 058
     Dates: start: 20121012
  3. RIBAVIRIN [Concomitant]
     Indication: HEPATITIS C
     Dosage: 600 mg AM/400 mg PM, bid
     Dates: start: 20121012
  4. PROPANOLOL                         /00030001/ [Concomitant]
     Indication: HYPERTENSION
     Dosage: 20 mg, prn

REACTIONS (9)
  - Dyspnoea [Not Recovered/Not Resolved]
  - Emotional disorder [Not Recovered/Not Resolved]
  - Epistaxis [Not Recovered/Not Resolved]
  - Nasopharyngitis [Not Recovered/Not Resolved]
  - Sinusitis [Not Recovered/Not Resolved]
  - Pyrexia [Recovered/Resolved]
  - Wheezing [Not Recovered/Not Resolved]
  - Pain [Recovered/Resolved]
  - Diarrhoea [Not Recovered/Not Resolved]
